FAERS Safety Report 7279654 (Version 5)
Quarter: 2014Q3

REPORT INFORMATION
  Report Type: Report from Study
  Country: FR (occurrence: FR)
  Receive Date: 20100216
  Receipt Date: 20140805
  Transmission Date: 20150326
  Serious: Yes (Life-Threatening, Hospitalization)
  Sender: FDA-Public Use
  Company Number: FR-ROCHE-684426

PATIENT
  Age: 50 Year
  Sex: Female
  Weight: 66 kg

DRUGS (5)
  1. TAXOTERE [Suspect]
     Active Substance: DOCETAXEL
     Indication: HER-2 POSITIVE BREAST CANCER
     Dosage: FORM:VIAL DOSE: 100 MG/M2?DATE OF LAST DOSE PRIOR TO SAE: 10 FEB 2010
     Route: 042
  2. TRASTUZUMAB [Suspect]
     Active Substance: TRASTUZUMAB
     Indication: INFLAMMATORY CARCINOMA OF THE BREAST
     Dosage: LOADING DOSE
     Route: 042
  3. TRIFLUCAN [Concomitant]
     Active Substance: FLUCONAZOLE
  4. BEVACIZUMAB [Suspect]
     Active Substance: BEVACIZUMAB
     Indication: INFLAMMATORY CARCINOMA OF THE BREAST
     Dosage: FORM: VIAL?DATE OF LAST DOSE PRIOR TO SAE: 10 FEB 2010
     Route: 042
  5. TRASTUZUMAB [Suspect]
     Active Substance: TRASTUZUMAB
     Dosage: DOSE: 6 MG/KG?DATE OF LAST DOSE PRIOR TO SAE: 10 FEB 2010
     Route: 042

REACTIONS (2)
  - Febrile bone marrow aplasia [Recovered/Resolved]
  - Febrile neutropenia [Recovered/Resolved]

NARRATIVE: CASE EVENT DATE: 20100128
